FAERS Safety Report 5502465-0 (Version None)
Quarter: 2007Q4

REPORT INFORMATION
  Report Type: 
  Country: None (occurrence: None)
  Receive Date: 20071030
  Receipt Date: 20071018
  Transmission Date: 20080405
  Serious: Yes (Other)
  Sender: FDA-Public Use
  Company Number: IT-PFIZER INC-2007087793

PATIENT
  Age: 28 Year
  Sex: Female

DRUGS (4)
  1. ELETRIPTAN [Suspect]
     Indication: MIGRAINE
     Dosage: DAILY DOSE:40MG
  2. FLUOXETINE [Interacting]
     Indication: BINGE EATING
     Dosage: DAILY DOSE:60MG
  3. FLUOXETINE [Interacting]
     Indication: PURGING
  4. ST. JOHN'S WORT [Interacting]

REACTIONS (8)
  - DRUG INTERACTION [None]
  - GRAND MAL CONVULSION [None]
  - LOSS OF CONSCIOUSNESS [None]
  - MENTAL IMPAIRMENT [None]
  - RENAL FAILURE ACUTE [None]
  - RHABDOMYOLYSIS [None]
  - SEROTONIN SYNDROME [None]
  - TREMOR [None]
